FAERS Safety Report 17562496 (Version 2)
Quarter: 2020Q1

REPORT INFORMATION
  Report Type: Spontaneous
  Country: DE (occurrence: DE)
  Receive Date: 20200319
  Receipt Date: 20200323
  Transmission Date: 20200409
  Serious: Yes (Other)
  Sender: FDA-Public Use
  Company Number: DE-PFIZER INC-2020115771

PATIENT
  Sex: Male

DRUGS (1)
  1. CYTOTEC [Suspect]
     Active Substance: MISOPROSTOL
     Indication: LABOUR INDUCTION
     Dosage: 350 UG, TOTAL (1X50, 3X100 MICROGRAMM)
     Dates: start: 20121005, end: 20121006

REACTIONS (3)
  - Pulmonary haemorrhage neonatal [Recovered/Resolved]
  - Foetal exposure during delivery [Unknown]
  - Foetal distress syndrome [Recovered/Resolved]

NARRATIVE: CASE EVENT DATE: 20121006
